FAERS Safety Report 21021014 (Version 1)
Quarter: 2022Q2

REPORT INFORMATION
  Report Type: Spontaneous
  Country: US (occurrence: US)
  Receive Date: 20220629
  Receipt Date: 20220629
  Transmission Date: 20220720
  Serious: No
  Sender: FDA-Public Use
  Company Number: US-BEH-2022146821

PATIENT
  Sex: Female

DRUGS (1)
  1. HIZENTRA [Suspect]
     Active Substance: HUMAN IMMUNOGLOBULIN G
     Dosage: 3 SITES OF ABDOMEN
     Route: 065

REACTIONS (5)
  - Infusion site extravasation [Unknown]
  - Exposure via skin contact [Unknown]
  - Chemical burn of skin [Unknown]
  - Erythema [Unknown]
  - Blister [Unknown]

NARRATIVE: CASE EVENT DATE: 20220619
